FAERS Safety Report 8853598 (Version 1)
Quarter: 2012Q4

REPORT INFORMATION
  Report Type: 
  Country: GB (occurrence: GB)
  Receive Date: 20121023
  Receipt Date: 20121023
  Transmission Date: 20130627
  Serious: Yes (Other)
  Sender: FDA-Public Use
  Company Number: GB-RANBAXY-2012R1-61094

PATIENT
  Age: 63 Year
  Sex: Female
  Weight: 64 kg

DRUGS (5)
  1. ATORVASTATIN [Suspect]
     Indication: BLOOD CHOLESTEROL INCREASED
     Dosage: UNK
     Route: 048
     Dates: start: 20120913, end: 20120921
  2. ADCAL-D3 [Concomitant]
     Indication: PRODUCT USED FOR UNKNOWN INDICATION
     Dosage: 1 DF, bid
     Route: 048
     Dates: start: 20080325
  3. NAPROXEN [Concomitant]
     Indication: PRODUCT USED FOR UNKNOWN INDICATION
     Dosage: 500 mg, bid
     Route: 048
     Dates: start: 20110121
  4. OMEPRAZOLE [Concomitant]
     Indication: PRODUCT USED FOR UNKNOWN INDICATION
     Dosage: 20 mg, qd
     Route: 048
     Dates: start: 20110121
  5. QUININE BISULPHATE [Concomitant]
     Indication: PRODUCT USED FOR UNKNOWN INDICATION
     Dosage: 200 mg, qd
     Route: 048
     Dates: start: 20100917

REACTIONS (3)
  - Muscle spasms [Recovering/Resolving]
  - Flatulence [Recovering/Resolving]
  - Vasculitic rash [Recovering/Resolving]
